FAERS Safety Report 8216283-6 (Version None)
Quarter: 2012Q1

REPORT INFORMATION
  Report Type: 
  Country: None (occurrence: None)
  Receive Date: 20120316
  Receipt Date: 20120306
  Transmission Date: 20120608
  Serious: Yes (Other)
  Sender: FDA-Public Use
  Company Number: PHHY2012CA014064

PATIENT
  Sex: Male
  Weight: 73 kg

DRUGS (6)
  1. ASPIRIN [Concomitant]
  2. DIURETICS [Concomitant]
  3. ANTIHYPERGLYCEMICS [Concomitant]
  4. ARB [Concomitant]
  5. ALISKIREN [Suspect]
     Indication: HYPERTENSION
     Dosage: 150 MG, UNK
     Route: 048
  6. LIPID  LOWERING AGENTS [Concomitant]

REACTIONS (3)
  - URINE ALBUMIN/CREATININE RATIO INCREASED [None]
  - HYPERKALAEMIA [None]
  - GLYCOSYLATED HAEMOGLOBIN INCREASED [None]
